FAERS Safety Report 20583948 (Version 1)
Quarter: 2022Q1

REPORT INFORMATION
  Report Type: Spontaneous
  Country: US (occurrence: None)
  Receive Date: 20220311
  Receipt Date: 20220311
  Transmission Date: 20220424
  Serious: Yes (Hospitalization)
  Sender: FDA-Public Use
  Company Number: None

PATIENT
  Age: 46 Year
  Sex: Female
  Weight: 118 kg

DRUGS (1)
  1. INSULIN GLARGINE [Suspect]
     Active Substance: INSULIN GLARGINE
     Indication: Diabetes mellitus

REACTIONS (6)
  - Intentional overdose [None]
  - Suicide attempt [None]
  - White blood cell count increased [None]
  - Hypoglycaemia [None]
  - Blood potassium decreased [None]
  - Drug screen positive [None]

NARRATIVE: CASE EVENT DATE: 20220305
